FAERS Safety Report 5318320-5 (Version None)
Quarter: 2007Q2

REPORT INFORMATION
  Report Type: 
  Country: None (occurrence: None)
  Receive Date: 20070507
  Receipt Date: 20070425
  Transmission Date: 20071010
  Serious: Yes (Hospitalization)
  Sender: FDA-Public Use
  Company Number: US-SANOFI-SYNTHELABO-A03200702098

PATIENT
  Sex: Male

DRUGS (7)
  1. ZOCOR [Concomitant]
     Dosage: UNK
     Route: 065
  2. DIGOXIN [Concomitant]
     Dosage: UNK
     Route: 065
  3. LASIX [Concomitant]
     Dosage: UNK
     Route: 065
  4. SPIRONOLACTONE [Concomitant]
     Dosage: UNK
     Route: 065
  5. COREG [Concomitant]
     Dosage: UNK
     Route: 065
  6. AMBIEN [Suspect]
     Indication: INSOMNIA
     Route: 048
     Dates: start: 20050101, end: 20070208
  7. ASPIRIN [Concomitant]
     Dosage: UNK
     Route: 065

REACTIONS (9)
  - AMNESIA [None]
  - DRUG ABUSER [None]
  - DYSPNOEA [None]
  - ECCHYMOSIS [None]
  - FALL [None]
  - HAEMORRHAGE [None]
  - HEAD INJURY [None]
  - LOSS OF CONSCIOUSNESS [None]
  - SUBDURAL HAEMATOMA [None]
